FAERS Safety Report 8380309-X (Version None)
Quarter: 2012Q2

REPORT INFORMATION
  Report Type: 
  Country: None (occurrence: None)
  Receive Date: 20120523
  Receipt Date: 20120510
  Transmission Date: 20120825
  Serious: Yes (Hospitalization)
  Sender: FDA-Public Use
  Company Number: IT-MYLANLABS-2012S1010088

PATIENT
  Age: 49 Year
  Sex: Female

DRUGS (3)
  1. LAMIVUDINE (EPIVIR HBV) [Suspect]
     Indication: HIV INFECTION
     Route: 065
     Dates: start: 20011001
  2. DIDANOSINE [Suspect]
     Indication: HIV INFECTION
     Route: 065
     Dates: start: 20011001
  3. INDINIVIR SULFATE [Suspect]
     Indication: HIV INFECTION
     Route: 065
     Dates: start: 20011001

REACTIONS (13)
  - HYPOAESTHESIA [None]
  - IMMUNE RECONSTITUTION SYNDROME [None]
  - CEREBELLAR SYNDROME [None]
  - PNEUMONIA BACTERIAL [None]
  - BRAIN ABSCESS [None]
  - RHODOCOCCUS INFECTION [None]
  - DIARRHOEA [None]
  - HEMIPARESIS [None]
  - DEMENTIA [None]
  - PUPILS UNEQUAL [None]
  - DECREASED VIBRATORY SENSE [None]
  - GAIT DISTURBANCE [None]
  - CEREBRAL ATROPHY [None]
